FAERS Safety Report 25613124 (Version 1)
Quarter: 2025Q3

REPORT INFORMATION
  Report Type: Spontaneous
  Country: US (occurrence: None)
  Receive Date: 20250726
  Receipt Date: 20250726
  Transmission Date: 20251021
  Serious: Yes (Other)
  Sender: FDA-CTU
  Company Number: None

PATIENT
  Age: 56 Year
  Sex: Female
  Weight: 97.2 kg

DRUGS (7)
  1. ESTRADIOL TRANSDERMAL SYSTEM [Suspect]
     Active Substance: ESTRADIOL
     Indication: Hormone therapy
     Dosage: 1 PATCH(ES) ONCE A WEEK TRANSDERMAL
     Route: 062
     Dates: start: 20250721, end: 20250722
  2. NP THYROID [Concomitant]
     Active Substance: LEVOTHYROXINE\LIOTHYRONINE
  3. METOPROLOL [Concomitant]
     Active Substance: METOPROLOL
  4. B Complex Plus Magnesium [Concomitant]
  5. L-Threonate Magnesium [Concomitant]
  6. Glysinate [Concomitant]
  7. Vitamin D3/K2 [Concomitant]

REACTIONS (3)
  - Drug hypersensitivity [None]
  - Skin laceration [None]
  - Product adhesion issue [None]

NARRATIVE: CASE EVENT DATE: 20250722
